FAERS Safety Report 20015956 (Version 1)
Quarter: 2021Q4

REPORT INFORMATION
  Report Type: Spontaneous
  Country: US (occurrence: None)
  Receive Date: 20211102
  Receipt Date: 20211102
  Transmission Date: 20220303
  Serious: No
  Sender: FDA-Public Use
  Company Number: None

PATIENT
  Age: 47 Year
  Sex: Male

DRUGS (2)
  1. REGEN-COV [Suspect]
     Active Substance: CASIRIVIMAB\IMDEVIMAB
     Indication: COVID-19 treatment
  2. Casirivimab Imdevimab [Concomitant]
     Dates: start: 20211102, end: 20211102

REACTIONS (4)
  - Dizziness [None]
  - Feeling hot [None]
  - Loss of consciousness [None]
  - Infusion related reaction [None]

NARRATIVE: CASE EVENT DATE: 20211102
